FAERS Safety Report 22595733 (Version 1)
Quarter: 2023Q2

REPORT INFORMATION
  Report Type: Report from Study
  Country: CO (occurrence: CO)
  Receive Date: 20230613
  Receipt Date: 20230613
  Transmission Date: 20230722
  Serious: Yes (Hospitalization)
  Sender: FDA-Public Use
  Company Number: CO-APIL-2314450US

PATIENT
  Sex: Male

DRUGS (2)
  1. BOTOX [Suspect]
     Active Substance: ONABOTULINUMTOXINA
     Indication: Facial spasm
     Dosage: TIME INTERVAL: AS NECESSARY
     Route: 065
     Dates: start: 20221031, end: 20221031
  2. BOTOX [Suspect]
     Active Substance: ONABOTULINUMTOXINA
     Indication: Facial spasm
     Dosage: TIME INTERVAL: AS NECESSARY
     Route: 065
     Dates: start: 20191007, end: 20191007

REACTIONS (4)
  - Oxygen saturation decreased [Not Recovered/Not Resolved]
  - Ocular discomfort [Not Recovered/Not Resolved]
  - Pneumonia [Not Recovered/Not Resolved]
  - Facial spasm [Not Recovered/Not Resolved]

NARRATIVE: CASE EVENT DATE: 20230101
